FAERS Safety Report 5309500-3 (Version None)
Quarter: 2007Q1

REPORT INFORMATION
  Report Type: 
  Country: None (occurrence: None)
  Receive Date: 20070201
  Receipt Date: 20061130
  Transmission Date: 20070707
  Serious: No
  Sender: FDA-Public Use
  Company Number: 258940

PATIENT
  Age: 86 Year
  Sex: Male
  Weight: 81.6 kg

DRUGS (16)
  1. LEVEMIR [Suspect]
     Indication: INSULIN-REQUIRING TYPE II DIABETES MELLITUS
     Dosage: 40 IU, QD, SUBCUTANEOUS
     Route: 058
     Dates: start: 20060914
  2. NOVOLIN R [Concomitant]
  3. PLAVIX [Concomitant]
  4. ASPIRIN [Concomitant]
  5. NEXIUM [Concomitant]
  6. AMIODARONE HCL [Concomitant]
  7. FERROUS SULFATE TAB [Concomitant]
  8. LASIX [Concomitant]
  9. FLOMAX (MORNIFLUMATE) [Concomitant]
  10. POTASSIUM (POTASSIUM CHLORIDE) [Concomitant]
  11. CALCIUM (CALCIUM) [Concomitant]
  12. CENTRUM SILVER (ASCORBIC ACID, CALCIUM, MINERALS NOS, RETINOL, TOCOPHE [Concomitant]
  13. VITIRON (CHOLINE BITARTRATE, INOSITOL, METHIONINE, MINERALS NOS, VITAM [Concomitant]
  14. ZEMPLAR [Concomitant]
  15. MIACALCIN [Concomitant]
  16. COREG [Concomitant]

REACTIONS (1)
  - BLOOD GLUCOSE INCREASED [None]
